FAERS Safety Report 8313119-X (Version None)
Quarter: 2012Q2

REPORT INFORMATION
  Report Type: 
  Country: None (occurrence: None)
  Receive Date: 20120426
  Receipt Date: 20120424
  Transmission Date: 20120825
  Serious: Yes (Other)
  Sender: FDA-Public Use
  Company Number: JP-PFIZER INC-2012101689

PATIENT
  Age: 57 Year
  Sex: Male

DRUGS (1)
  1. VARENICLINE TARTRATE [Suspect]
     Indication: SMOKING CESSATION THERAPY
     Dosage: 0.5MG/DAY
     Route: 048
     Dates: start: 20120404, end: 20120411

REACTIONS (2)
  - APHTHOUS STOMATITIS [None]
  - EATING DISORDER [None]
